FAERS Safety Report 12237076 (Version 2)
Quarter: 2016Q2

REPORT INFORMATION
  Report Type: Report from Study
  Country: US (occurrence: US)
  Receive Date: 20160405
  Receipt Date: 20160420
  Transmission Date: 20160815
  Serious: No
  Sender: FDA-Public Use
  Company Number: US-AMGEN-USASL2016039740

PATIENT
  Age: 56 Year
  Sex: Female

DRUGS (1)
  1. ENBREL [Suspect]
     Active Substance: ETANERCEPT
     Indication: RHEUMATOID ARTHRITIS
     Dosage: 50 MG, QWK
     Route: 065
     Dates: start: 20160315

REACTIONS (8)
  - Peripheral swelling [Unknown]
  - Hot flush [Recovered/Resolved]
  - Vomiting [Recovered/Resolved]
  - Root canal infection [Unknown]
  - Musculoskeletal stiffness [Unknown]
  - Nausea [Recovered/Resolved]
  - Feeling cold [Recovered/Resolved]
  - Pruritus [Unknown]

NARRATIVE: CASE EVENT DATE: 2016
